FAERS Safety Report 10505444 (Version 1)
Quarter: 2014Q4

REPORT INFORMATION
  Report Type: Spontaneous
  Country: JP (occurrence: JP)
  Receive Date: 20141008
  Receipt Date: 20141008
  Transmission Date: 20150528
  Serious: Yes (Hospitalization)
  Sender: FDA-Public Use
  Company Number: JP-SA-2014SA137667

PATIENT
  Age: 38 Year
  Sex: Female
  Weight: 77 kg

DRUGS (3)
  1. INSULIN HUMAN NOS [Suspect]
     Active Substance: INSULIN HUMAN
     Indication: SUICIDE ATTEMPT
     Dosage: DOSE:200 UNIT(S)
     Route: 058
  2. SOLOSTAR [Concomitant]
     Active Substance: DEVICE
     Indication: SUICIDE ATTEMPT
     Route: 058
  3. LANTUS [Suspect]
     Active Substance: INSULIN GLARGINE
     Indication: SUICIDE ATTEMPT
     Dosage: DOSE:300 UNIT(S)
     Route: 058

REACTIONS (5)
  - Hypokalaemia [Recovered/Resolved]
  - Tachycardia [Recovered/Resolved]
  - Intentional overdose [Unknown]
  - Altered state of consciousness [Recovered/Resolved]
  - Hypoglycaemia [Recovered/Resolved]
